FAERS Safety Report 20875069 (Version 2)
Quarter: 2022Q2

REPORT INFORMATION
  Report Type: Spontaneous
  Country: US (occurrence: US)
  Receive Date: 20220526
  Receipt Date: 20220607
  Transmission Date: 20220720
  Serious: Yes (Other)
  Sender: FDA-Public Use
  Company Number: US-AMGEN-USASP2022085954

PATIENT
  Age: 28 Year
  Sex: Male

DRUGS (2)
  1. EPOGEN [Suspect]
     Active Substance: ERYTHROPOIETIN
     Indication: Sickle cell anaemia
     Dosage: UNK
     Route: 065
     Dates: start: 2021
  2. EPOGEN [Suspect]
     Active Substance: ERYTHROPOIETIN
     Indication: Anaemia

REACTIONS (2)
  - Chronic kidney disease [Unknown]
  - Nephrogenic anaemia [Unknown]

NARRATIVE: CASE EVENT DATE: 20220101
